FAERS Safety Report 13821431 (Version 1)
Quarter: 2017Q3

REPORT INFORMATION
  Report Type: Spontaneous
  Country: DE (occurrence: DE)
  Receive Date: 20170801
  Receipt Date: 20170801
  Transmission Date: 20171127
  Serious: Yes (Other)
  Sender: FDA-Public Use
  Company Number: DE-TEVA-790659GER

PATIENT
  Age: 60 Year
  Sex: Female
  Weight: 84 kg

DRUGS (1)
  1. CLINDAMYCIN ABZ 300 MG HARTKAPSELN [Suspect]
     Active Substance: CLINDAMYCIN HYDROCHLORIDE
     Indication: PULPITIS DENTAL
     Dosage: 900 MILLIGRAM DAILY;
     Route: 048
     Dates: start: 20170703, end: 20170706

REACTIONS (3)
  - Tinnitus [Recovered/Resolved]
  - Deafness bilateral [Recovered/Resolved]
  - Hypoacusis [Recovered/Resolved]

NARRATIVE: CASE EVENT DATE: 20170704
